FAERS Safety Report 7875203-4 (Version None)
Quarter: 2011Q4

REPORT INFORMATION
  Report Type: 
  Country: None (occurrence: None)
  Receive Date: 20111031
  Receipt Date: 20111023
  Transmission Date: 20120403
  Serious: Yes (Hospitalization, Other)
  Sender: FDA-Public Use
  Company Number: US-ASTELLAS-2011US005594

PATIENT
  Sex: Male
  Weight: 59 kg

DRUGS (10)
  1. PROGRAF [Suspect]
     Indication: HEART TRANSPLANT
     Dosage: 3 MG, UID/QD 1MG AM, 2 MG HS
     Route: 048
     Dates: start: 20000928
  2. BUDESONIDE [Concomitant]
     Indication: PRODUCT USED FOR UNKNOWN INDICATION
     Dosage: UNK
     Route: 065
  3. MYCOPHENOLATE MOFETIL (CELLCEPT) [Concomitant]
     Indication: HEART TRANSPLANT
     Dosage: 250 MG, UID/QD T, TH, S, S
     Route: 065
  4. MULTI-VITAMIN [Concomitant]
     Indication: PRODUCT USED FOR UNKNOWN INDICATION
     Dosage: 1 DF, UID/QD
     Route: 048
  5. FOSAMAX [Concomitant]
     Indication: PRODUCT USED FOR UNKNOWN INDICATION
     Dosage: 70 MG, WEEKLY
     Route: 048
  6. OMEPRAZOLE [Concomitant]
     Indication: PRODUCT USED FOR UNKNOWN INDICATION
     Dosage: UNK
     Route: 065
  7. CALCIUM +VIT D [Concomitant]
     Indication: PRODUCT USED FOR UNKNOWN INDICATION
     Dosage: 600 MG, BID
     Route: 048
  8. MYCOPHENOLATE MOFETIL (CELLCEPT) [Concomitant]
     Dosage: 250 MG, BID M, W, F
     Route: 048
  9. CITALOPRAM HYDROBROMIDE [Concomitant]
     Indication: PRODUCT USED FOR UNKNOWN INDICATION
     Dosage: 40 MG, UID/QD
  10. XANAX [Concomitant]
     Indication: PRODUCT USED FOR UNKNOWN INDICATION
     Dosage: 0.5 MG, UNKNOWN/D
     Route: 065

REACTIONS (24)
  - RENAL FAILURE CHRONIC [None]
  - MIGRAINE [None]
  - NAUSEA [None]
  - WEIGHT DECREASED [None]
  - DRUG INEFFECTIVE [None]
  - CATHETER SITE HAEMATOMA [None]
  - HEART TRANSPLANT [None]
  - APPENDICECTOMY [None]
  - LIVER ABSCESS [None]
  - ABDOMINAL PAIN [None]
  - DRUG DEPENDENCE [None]
  - HYPERLIPIDAEMIA [None]
  - ANAEMIA [None]
  - CHEMICAL PERITONITIS [None]
  - HYPERTENSION [None]
  - NEUTROPENIA [None]
  - HEART TRANSPLANT REJECTION [None]
  - DEPRESSION [None]
  - IMMUNOSUPPRESSANT DRUG LEVEL DECREASED [None]
  - GRAFT VERSUS HOST DISEASE [None]
  - DIARRHOEA [None]
  - BACK PAIN [None]
  - CARDIAC DISORDER [None]
  - VOMITING [None]
